FAERS Safety Report 21606545 (Version 4)
Quarter: 2022Q4

REPORT INFORMATION
  Report Type: Report from Study
  Country: MX (occurrence: MX)
  Receive Date: 20221117
  Receipt Date: 20221230
  Transmission Date: 20230113
  Serious: Yes (Hospitalization)
  Sender: FDA-Public Use
  Company Number: MX-002147023-NVSC2022MX257414

PATIENT
  Age: 39 Year
  Sex: Female
  Weight: 79 kg

DRUGS (3)
  1. GILENYA [Suspect]
     Active Substance: FINGOLIMOD HYDROCHLORIDE
     Indication: Multiple sclerosis
     Dosage: 0.5 MG, QD (1 OF 0.5MG)
     Route: 048
     Dates: start: 20221104, end: 20221202
  2. FLUOXETINE [Concomitant]
     Active Substance: FLUOXETINE HYDROCHLORIDE
     Indication: Depression
     Dosage: 1 DOSAGE FORM (IN THE MORNING, IN THE AFTERNOON AND AT NIGHT)
     Route: 048
     Dates: start: 201801
  3. CLONAZEPAM [Concomitant]
     Active Substance: CLONAZEPAM
     Indication: Depression
     Dosage: UNK (DROPS IN THE MORNING AND 5 DROPS AT NIGHT)
     Route: 048
     Dates: start: 201801

REACTIONS (11)
  - Pneumonia [Recovered/Resolved with Sequelae]
  - Influenza [Recovered/Resolved with Sequelae]
  - Cough [Recovered/Resolved with Sequelae]
  - Multiple sclerosis relapse [Recovered/Resolved]
  - Mobility decreased [Recovered/Resolved]
  - Disease progression [Unknown]
  - Weight increased [Unknown]
  - Sleep disorder [Unknown]
  - Lymphopenia [Unknown]
  - Dyspnoea [Unknown]
  - Product availability issue [Unknown]

NARRATIVE: CASE EVENT DATE: 20221128
